FAERS Safety Report 7952259-1 (Version None)
Quarter: 2011Q4

REPORT INFORMATION
  Report Type: 
  Country: None (occurrence: None)
  Receive Date: 20111201
  Receipt Date: 20111128
  Transmission Date: 20120403
  Serious: Yes (Hospitalization, Congenital Anomaly, Other)
  Sender: FDA-Public Use
  Company Number: US-PFIZER INC-2011285842

PATIENT
  Sex: Male
  Weight: 4 kg

DRUGS (2)
  1. ZOLOFT [Suspect]
     Dosage: UNK
     Route: 064
  2. MULTI-VITAMINS [Concomitant]
     Dosage: UNK
     Route: 064

REACTIONS (12)
  - OTITIS MEDIA CHRONIC [None]
  - CIRCUMCISION [None]
  - APERT'S SYNDROME [None]
  - MICROGNATHIA [None]
  - ATRIAL SEPTAL DEFECT [None]
  - DEVELOPMENTAL DELAY [None]
  - FAILURE TO THRIVE [None]
  - CONGENITAL ACROCHORDON [None]
  - MATERNAL EXPOSURE TIMING UNSPECIFIED [None]
  - CRANIOSYNOSTOSIS [None]
  - UPPER AIRWAY OBSTRUCTION [None]
  - CLEFT PALATE [None]
